FAERS Safety Report 7783219-1 (Version None)
Quarter: 2011Q3

REPORT INFORMATION
  Report Type: 
  Country: None (occurrence: None)
  Receive Date: 20110928
  Receipt Date: 20110914
  Transmission Date: 20111222
  Serious: No
  Sender: FDA-Public Use
  Company Number: US-B.I. PHARMACEUTICALS,INC./RIDGEFIELD-2011-BP-20760BP

PATIENT
  Sex: Female

DRUGS (3)
  1. MEDICATION NOT FURTHER SPECIFIED [Concomitant]
  2. CATAPRES-TTS-1 [Suspect]
     Indication: HYPERTENSION
     Dosage: 0.2 MG
     Route: 062
     Dates: start: 19960101
  3. CATAPRES-TTS-1 [Suspect]
     Indication: PAIN

REACTIONS (1)
  - HYPERTENSION [None]
